FAERS Safety Report 8276686-0 (Version None)
Quarter: 2012Q2

REPORT INFORMATION
  Report Type: 
  Country: None (occurrence: None)
  Receive Date: 20120412
  Receipt Date: 20120412
  Transmission Date: 20120825
  Serious: No
  Sender: FDA-Public Use
  Company Number: None

PATIENT
  Age: 63 Year
  Sex: Female
  Weight: 80.6 kg

DRUGS (13)
  1. ENOXAPARIN [Suspect]
     Indication: PULMONARY EMBOLISM
     Dosage: 90MG
     Route: 058
     Dates: start: 20120326, end: 20120408
  2. FLUCONAZOLE [Concomitant]
  3. URSIDIOL [Concomitant]
  4. CETIRIZINE [Concomitant]
  5. DAPSONE [Concomitant]
  6. BUDESONIDE [Concomitant]
  7. ESCITALOPRAM [Concomitant]
  8. LEVOTHYROXINE SODIUM [Concomitant]
  9. OMEPRAZOLE [Concomitant]
  10. ACYCLOVIR [Concomitant]
  11. SIROLIMUS [Concomitant]
  12. CHOLECALCIFEROL [Concomitant]
  13. NITROFURANTOIN [Concomitant]

REACTIONS (2)
  - EXTRADURAL HAEMATOMA [None]
  - PARAPLEGIA [None]
